FAERS Safety Report 8552807-7 (Version None)
Quarter: 2012Q3

REPORT INFORMATION
  Report Type: 
  Country: None (occurrence: None)
  Receive Date: 20120731
  Receipt Date: 20120726
  Transmission Date: 20120928
  Serious: No
  Sender: FDA-Public Use
  Company Number: PHBS2007BR14352

PATIENT
  Sex: Female
  Weight: 64 kg

DRUGS (12)
  1. DEFLAZACORT [Concomitant]
     Indication: RHEUMATOID ARTHRITIS
     Dosage: 6 MG, DAILY
     Route: 048
  2. DIOVAN HCT [Suspect]
     Dosage: 1 DF, QD (VALS 320 MG AND HCTZ 25 MG)
  3. DILTIAZEM [Concomitant]
     Dosage: 60 MG, BID
     Route: 048
  4. TICLOPIDINE HCL [Concomitant]
     Dosage: 1 DF, BID
     Route: 048
  5. ALENDRONATE SODIUM [Concomitant]
     Indication: OSTEOPOROSIS
     Dosage: 70 MG/WEEK
     Route: 048
  6. DIOVAN HCT [Suspect]
     Indication: HYPERTENSION
     Dosage: (VALS 80 / HCTZ 12.5 MG)
     Route: 048
  7. VITAMIN D [Concomitant]
     Indication: CALCIUM DEFICIENCY
     Dosage: 1 DF, DAILY
     Route: 048
  8. DIOVAN HCT [Suspect]
     Dosage: (VALS 160 MG AND HCTZ 12.5 MG)
  9. SUSTRATE [Concomitant]
     Dosage: 1 DF, BID
     Route: 048
  10. CALCIUM CARBONATE [Concomitant]
     Indication: CALCIUM DEFICIENCY
     Dosage: 600 MG, DAILY
     Route: 048
  11. CHLOROQUINE PHOSPHATE [Concomitant]
     Dosage: 250 MG, TWICE DAILY PER WEEK
     Route: 048
  12. CYMBALTA [Concomitant]

REACTIONS (5)
  - ARTHRITIS [None]
  - COUGH [None]
  - BODY HEIGHT DECREASED [None]
  - NAUSEA [None]
  - URINARY INCONTINENCE [None]
